FAERS Safety Report 4312784-1 (Version None)
Quarter: 2004Q1

REPORT INFORMATION
  Report Type: 
  Country: None (occurrence: None)
  Receive Date: 20040304
  Receipt Date: 20040218
  Transmission Date: 20041129
  Serious: Yes (Other)
  Sender: FDA-Public Use
  Company Number: JP-JNJFOC-20040300385

PATIENT
  Age: 51 Year
  Sex: Male

DRUGS (13)
  1. REMICADE [Suspect]
     Indication: RHEUMATOID ARTHRITIS
     Dosage: INTRAVENOUS
     Route: 042
  2. ALPROSTADIL [Concomitant]
  3. FAMOTIDINE [Concomitant]
  4. LOXOPROFEN SODIUM (LOXOPROFEN SODIUM) [Concomitant]
  5. MAGNESIUM OXIDE (MAGNESIUM OXIDE) [Concomitant]
  6. MECOBALAMIN (MECOBALAMIN) [Concomitant]
  7. METHOTREXATE [Concomitant]
  8. MIZORIBINE (MIZORIBINE) [Concomitant]
  9. PREDNISOLONE [Concomitant]
  10. SALAZOSULFAPYRIDINE (SULFASALIZINE) [Concomitant]
  11. SARPOGRELATE HYDROCHLORIDE (SARPOGRELATE HYDROCHLORIDE) [Concomitant]
  12. WARFARIN POTASSIUM (WARFARIN POTASSIUM) [Concomitant]
  13. LAC 8 (LACTOSE) [Concomitant]

REACTIONS (1)
  - LEG AMPUTATION [None]
